FAERS Safety Report 10072212 (Version 1)
Quarter: 2014Q2

REPORT INFORMATION
  Report Type: Spontaneous
  Country: US (occurrence: None)
  Receive Date: 20140410
  Receipt Date: 20140410
  Transmission Date: 20141212
  Serious: Yes (Hospitalization, Other)
  Sender: FDA-Public Use
  Company Number: None

PATIENT
  Age: 65 Year
  Sex: Male
  Weight: 90 kg

DRUGS (3)
  1. YERVOY [Suspect]
     Indication: MALIGNANT MELANOMA
     Route: 042
     Dates: start: 20140204, end: 20140225
  2. LOMOTIL [Concomitant]
  3. METHYLPREDNISOLONE [Concomitant]

REACTIONS (3)
  - Diarrhoea [None]
  - Intestinal perforation [None]
  - No therapeutic response [None]
